FAERS Safety Report 4498486-X (Version None)
Quarter: 2004Q4

REPORT INFORMATION
  Report Type: 
  Country: None (occurrence: None)
  Receive Date: 20041105
  Receipt Date: 20041028
  Transmission Date: 20050328
  Serious: Yes (Hospitalization)
  Sender: FDA-Public Use
  Company Number: K200401677

PATIENT
  Age: 40 Year
  Sex: Female
  Weight: 62.6 kg

DRUGS (3)
  1. LORABID [Suspect]
     Indication: PYREXIA
     Dosage: 400 MG, BID
     Dates: start: 20040114, end: 20040123
  2. CEPHALOSPORIN C (CEPHALOSPORIN C) [Concomitant]
  3. ECHINACEA EXTRACT (ECHINACEA PURPUREA EXTRACT) [Concomitant]

REACTIONS (8)
  - ASTHENIA [None]
  - CHILLS [None]
  - GLYCOSURIA [None]
  - LEUKOCYTOSIS [None]
  - NEPHRITIS INTERSTITIAL [None]
  - PNEUMONIA MYCOPLASMAL [None]
  - RENAL FAILURE [None]
  - UNEVALUABLE EVENT [None]
